FAERS Safety Report 16572646 (Version 1)
Quarter: 2019Q3

REPORT INFORMATION
  Report Type: Spontaneous
  Country: US (occurrence: US)
  Receive Date: 20190715
  Receipt Date: 20190715
  Transmission Date: 20191004
  Serious: No
  Sender: FDA-Public Use
  Company Number: US-SA-2019SA188285

PATIENT

DRUGS (1)
  1. XYZAL [Suspect]
     Active Substance: LEVOCETIRIZINE DIHYDROCHLORIDE
     Indication: FATIGUE
     Dosage: UNK UNK, UNK
     Route: 065

REACTIONS (2)
  - Fatigue [Unknown]
  - Wrong technique in product usage process [Unknown]
